FAERS Safety Report 4507219-X (Version None)
Quarter: 2005Q1

REPORT INFORMATION
  Report Type: 
  Country: None (occurrence: None)
  Receive Date: 20041025
  Receipt Date: 20040520
  Transmission Date: 20050727
  Serious: Yes (Other)
  Sender: FDA-Public Use
  Company Number: US-JNJFOC-20040505256

PATIENT
  Age: 47 Year
  Sex: Female
  Weight: 65.7716 kg

DRUGS (10)
  1. INFLIXIMAB  (INFLIXIMAB, RECOMBINANT) LYOPHILIZED POWDER [Suspect]
     Indication: RHEUMATOID ARTHRITIS
     Dosage: INTRAVENOUS
     Route: 042
     Dates: start: 20020506
  2. ASPIRIN [Concomitant]
  3. CELEBREX [Concomitant]
  4. EVISTA [Concomitant]
  5. FOSAMAX [Concomitant]
  6. METHTOREXATE (METHOTREXATE) [Concomitant]
  7. SYNTHROID [Concomitant]
  8. WELLBUTRIN [Concomitant]
  9. MULTIVITAMIN (MULTIVITAMINS) [Concomitant]
  10. CALCIUM (CALCIUM) [Concomitant]

REACTIONS (2)
  - SINUSITIS [None]
  - SKIN INFECTION [None]
